FAERS Safety Report 9356046 (Version 1)
Quarter: 2013Q2

REPORT INFORMATION
  Report Type: Report from Study
  Country: DE (occurrence: DE)
  Receive Date: 20130619
  Receipt Date: 20130619
  Transmission Date: 20140414
  Serious: Yes (Other)
  Sender: FDA-Public Use
  Company Number: DE-ABBOTT-13P-062-1105205-00

PATIENT
  Sex: Male

DRUGS (1)
  1. HUMIRA [Suspect]
     Indication: PSORIASIS
     Route: 058
     Dates: start: 20110321, end: 20130228

REACTIONS (2)
  - Bladder neoplasm [Not Recovered/Not Resolved]
  - Liver function test abnormal [Not Recovered/Not Resolved]
